FAERS Safety Report 7726687-3 (Version None)
Quarter: 2011Q3

REPORT INFORMATION
  Report Type: 
  Country: None (occurrence: None)
  Receive Date: 20110902
  Receipt Date: 20110902
  Transmission Date: 20111222
  Serious: Yes (Other)
  Sender: FDA-Public Use
  Company Number: None

PATIENT
  Age: 58 Year
  Sex: Female
  Weight: 67.131 kg

DRUGS (1)
  1. HYDROCODONE BITARTRATE AND ACETAMINOPHEN [Suspect]
     Indication: ARTHRITIS
     Dosage: 1 TO 2 TABLETS
     Route: 048
     Dates: start: 20110819, end: 20110901

REACTIONS (3)
  - DYSPEPSIA [None]
  - PRODUCT QUALITY ISSUE [None]
  - NAUSEA [None]
